FAERS Safety Report 23525522 (Version 1)
Quarter: 2024Q1

REPORT INFORMATION
  Report Type: Spontaneous
  Country: CA (occurrence: CA)
  Receive Date: 20240215
  Receipt Date: 20240215
  Transmission Date: 20240410
  Serious: Yes (Other)
  Sender: FDA-Public Use
  Company Number: CA-AMGEN-CANSP2024028051

PATIENT
  Age: 60 Year
  Sex: Female

DRUGS (7)
  1. BEVACIZUMAB [Suspect]
     Active Substance: BEVACIZUMAB
     Indication: Ovarian cancer
     Dosage: Q2WK (BIWEEKLY)
     Route: 065
  2. PACLITAXEL [Concomitant]
     Active Substance: PACLITAXEL
     Indication: Ovarian cancer
     Dosage: UNK, QWK
     Route: 065
  3. GEMCITABINE [Concomitant]
     Active Substance: GEMCITABINE
     Indication: Ovarian cancer metastatic
     Dosage: 1000 MILLIGRAM/M^2
     Route: 065
  4. GEMCITABINE [Concomitant]
     Active Substance: GEMCITABINE
     Dosage: 200 MILLIGRAM/M^2
     Route: 065
  5. Camonsertib [Concomitant]
     Indication: Ovarian cancer metastatic
     Dosage: 80 MILLIGRAM ( 3 DAYS [D] ON/4D OFF) ON A 21D CYCLE (2 WEEKS [W] ON/2W OFT)
     Route: 065
  6. Camonsertib [Concomitant]
     Dosage: 50 MILLIGRAM (2D ON/5D OFF) ON A 28D CYCLE (1W ON/1W OFT)
     Route: 065
  7. Camonsertib [Concomitant]
     Dosage: 80 MILLIGRAM
     Route: 065

REACTIONS (3)
  - Ovarian cancer metastatic [Recovering/Resolving]
  - Neutropenia [Unknown]
  - Therapy partial responder [Unknown]
